FAERS Safety Report 15136524 (Version 1)
Quarter: 2018Q3

REPORT INFORMATION
  Report Type: Spontaneous
  Country: US (occurrence: US)
  Receive Date: 20180618
  Receipt Date: 20180618
  Transmission Date: 20181010
  Serious: Yes (Death)
  Sender: FDA-Public Use
  Company Number: None

PATIENT
  Age: 49 Year
  Sex: Male

DRUGS (12)
  1. VITAMIN C [Concomitant]
     Active Substance: ASCORBIC ACID
  2. ZOSYN [Concomitant]
     Active Substance: PIPERACILLIN SODIUM\TAZOBACTAM SODIUM
  3. PRILOSEC [Concomitant]
     Active Substance: OMEPRAZOLE MAGNESIUM
  4. FERRIC SUBSU [Concomitant]
  5. NOVOLIN [Concomitant]
     Active Substance: INSULIN HUMAN
  6. ACETAMINE [Concomitant]
  7. COREG [Concomitant]
     Active Substance: CARVEDILOL
  8. BACLOFEN. [Concomitant]
     Active Substance: BACLOFEN
  9. DUO?CARE [Concomitant]
  10. GLUCAGON. [Concomitant]
     Active Substance: GLUCAGON
  11. ENTECAVIR. [Suspect]
     Active Substance: ENTECAVIR
     Indication: HEPATITIS B
     Route: 048
     Dates: start: 20151119
  12. HEPARIN LOCK [Concomitant]

REACTIONS (1)
  - Death [None]

NARRATIVE: CASE EVENT DATE: 20180603
